FAERS Safety Report 7817722-2 (Version None)
Quarter: 2011Q4

REPORT INFORMATION
  Report Type: 
  Country: None (occurrence: None)
  Receive Date: 20111017
  Receipt Date: 20111010
  Transmission Date: 20120403
  Serious: Yes (Other)
  Sender: FDA-Public Use
  Company Number: FI-JNJFOC-20111004946

PATIENT
  Age: 13 Year
  Sex: Male

DRUGS (1)
  1. CONCERTA [Suspect]
     Indication: ATTENTION DEFICIT/HYPERACTIVITY DISORDER
     Dosage: DISCONTINUED DURING FEB_MAR 2011
     Route: 065
     Dates: start: 20101101

REACTIONS (3)
  - HALLUCINATION, VISUAL [None]
  - RESTLESSNESS [None]
  - ASPERGER'S DISORDER [None]
